FAERS Safety Report 6783142-5 (Version None)
Quarter: 2010Q2

REPORT INFORMATION
  Report Type: 
  Country: None (occurrence: None)
  Receive Date: 20100622
  Receipt Date: 20100610
  Transmission Date: 20101027
  Serious: Yes (Other)
  Sender: FDA-Public Use
  Company Number: DE-PFIZER INC-2010062075

PATIENT
  Age: 67 Year
  Sex: Male

DRUGS (3)
  1. ZOLOFT [Suspect]
     Indication: PAIN
     Dosage: 200 MG, 1X/DAY
     Route: 048
     Dates: start: 20090101
  2. ZOLOFT [Suspect]
     Indication: DEPRESSION
     Dosage: 100 MG, UNK
     Route: 048
     Dates: start: 20100201, end: 20100518
  3. ASPIRIN [Concomitant]
     Dosage: UNK

REACTIONS (1)
  - SPERMATOZOA ABNORMAL [None]
